FAERS Safety Report 20863441 (Version 2)
Quarter: 2022Q3

REPORT INFORMATION
  Report Type: Spontaneous
  Country: CA (occurrence: CA)
  Receive Date: 20220523
  Receipt Date: 20220830
  Transmission Date: 20221026
  Serious: Yes (Hospitalization, Disabling, Other)
  Sender: FDA-Public Use
  Company Number: CA-SA-SAC20220520000100

PATIENT
  Age: 61 Year
  Sex: Female
  Weight: 99.79 kg

DRUGS (3)
  1. TRIAMCINOLONE ACETONIDE [Suspect]
     Active Substance: TRIAMCINOLONE ACETONIDE
     Indication: Osteoarthritis
     Dosage: UNK
     Route: 014
     Dates: start: 20211217
  2. MARCAINE [Suspect]
     Active Substance: BUPIVACAINE HYDROCHLORIDE
     Indication: Osteoarthritis
     Dosage: UNK
     Route: 014
     Dates: start: 20211217
  3. LIDOCAINE [Suspect]
     Active Substance: LIDOCAINE
     Indication: Osteoarthritis
     Dosage: UNK
     Route: 014
     Dates: start: 20211217

REACTIONS (3)
  - Arthritis bacterial [Unknown]
  - Corynebacterium infection [Unknown]
  - Hip surgery [Unknown]

NARRATIVE: CASE EVENT DATE: 20211221
